FAERS Safety Report 9856946 (Version 2)
Quarter: 2014Q1

REPORT INFORMATION
  Report Type: Report from Study
  Country: DE (occurrence: DE)
  Receive Date: 20140130
  Receipt Date: 20140131
  Transmission Date: 20141002
  Serious: Yes (Hospitalization)
  Sender: FDA-Public Use
  Company Number: PHHO2014DE001632

PATIENT
  Sex: 0

DRUGS (4)
  1. TACROLIMUS [Suspect]
     Indication: RENAL TRANSPLANT
     Dosage: 5 MG, BID
     Route: 048
     Dates: start: 20130726
  2. MYFORTIC [Suspect]
     Indication: RENAL TRANSPLANT
     Dosage: 360 MG, BID
     Route: 048
     Dates: start: 20130726
  3. FOLSAN [Concomitant]
     Indication: FOLATE DEFICIENCY
     Dosage: UNK
     Dates: start: 20130805
  4. CARMEN [Concomitant]
     Indication: HYPERTENSION
     Dosage: UNK
     Dates: start: 20130805

REACTIONS (1)
  - C-reactive protein increased [Unknown]
